FAERS Safety Report 7148124-2 (Version None)
Quarter: 2010Q4

REPORT INFORMATION
  Report Type: 
  Country: None (occurrence: None)
  Receive Date: 20101209
  Receipt Date: 20101130
  Transmission Date: 20110411
  Serious: Yes (Hospitalization, Other)
  Sender: FDA-Public Use
  Company Number: US-PFIZER INC-US-WYE-H18157710

PATIENT
  Sex: Female
  Weight: 54.422 kg

DRUGS (1)
  1. PRISTIQ [Suspect]
     Dosage: UNK
     Route: 048
     Dates: start: 20101006, end: 20101009

REACTIONS (3)
  - ANXIETY [None]
  - HEART RATE INCREASED [None]
  - MANIA [None]
